FAERS Safety Report 20968471 (Version 1)
Quarter: 2022Q2

REPORT INFORMATION
  Report Type: Spontaneous
  Country: US (occurrence: US)
  Receive Date: 20220616
  Receipt Date: 20220616
  Transmission Date: 20220721
  Serious: Yes (Death)
  Sender: FDA-Public Use
  Company Number: US-AMNEAL PHARMACEUTICALS-2022-AMRX-00722

PATIENT
  Age: 66 Year
  Sex: Female

DRUGS (2)
  1. RYTARY [Suspect]
     Active Substance: CARBIDOPA\LEVODOPA
     Indication: Parkinson^s disease
     Dosage: 11 CAPSULES, DAILY, 3 CAPS AT 8AM, NOON, 4PM AND 2 CAPS AT 9PM
     Route: 048
  2. ENTACAPONE [Concomitant]
     Active Substance: ENTACAPONE
     Indication: Parkinson^s disease
     Dosage: 1 CAPSULES (8 AM, 12PM, 4 PM, AND 09PM), 4 /DAY
     Route: 065

REACTIONS (6)
  - Death [Fatal]
  - Dry throat [Unknown]
  - Oropharyngeal pain [Unknown]
  - Dyspnoea [Unknown]
  - Dry mouth [Unknown]
  - Product use complaint [Unknown]

NARRATIVE: CASE EVENT DATE: 20220301
